FAERS Safety Report 18901285 (Version 3)
Quarter: 2022Q2

REPORT INFORMATION
  Report Type: Spontaneous
  Country: JP (occurrence: JP)
  Receive Date: 20210217
  Receipt Date: 20220422
  Transmission Date: 20220721
  Serious: Yes (Hospitalization, Other)
  Sender: FDA-Public Use
  Company Number: JP-ALXN-A202101740

PATIENT
  Age: 0 Year
  Sex: Female
  Weight: 2.23 kg

DRUGS (6)
  1. SOLIRIS [Suspect]
     Active Substance: ECULIZUMAB
     Indication: Foetal exposure during pregnancy
     Dosage: 900 MG, UNK
     Route: 064
     Dates: start: 20200605
  2. SOLIRIS [Suspect]
     Active Substance: ECULIZUMAB
     Indication: Foetal exposure during pregnancy
     Dosage: 900 MG, UNK
     Route: 064
     Dates: start: 20200605
  3. SOLIRIS [Suspect]
     Active Substance: ECULIZUMAB
     Dosage: 1200 MG, Q2W
     Route: 063
  4. SOLIRIS [Suspect]
     Active Substance: ECULIZUMAB
     Dosage: 1200 MG, Q2W
     Route: 063
  5. SOLIRIS [Suspect]
     Active Substance: ECULIZUMAB
     Indication: Exposure via breast milk
     Dosage: 1200 MG, Q2W
     Route: 064
     Dates: start: 20200703
  6. SOLIRIS [Suspect]
     Active Substance: ECULIZUMAB
     Indication: Exposure via breast milk
     Dosage: 1200 MG, Q2W
     Route: 064
     Dates: start: 20200703

REACTIONS (5)
  - Myasthenia gravis [Unknown]
  - Hypoglycaemia [Recovered/Resolved]
  - Low birth weight baby [Unknown]
  - Exposure via breast milk [Unknown]
  - Foetal exposure during pregnancy [Unknown]

NARRATIVE: CASE EVENT DATE: 20200605
